FAERS Safety Report 10175748 (Version 1)
Quarter: 2014Q2

REPORT INFORMATION
  Report Type: Report from Study
  Country: CN (occurrence: CN)
  Receive Date: 20140516
  Receipt Date: 20140516
  Transmission Date: 20141212
  Serious: Yes (Death)
  Sender: FDA-Public Use
  Company Number: CN-JNJFOC-20140509929

PATIENT
  Sex: Female

DRUGS (4)
  1. RISPERDAL [Suspect]
     Indication: DEPRESSION
     Route: 065
  2. ABILIFY [Concomitant]
     Route: 065
  3. CELEXA [Concomitant]
     Route: 065
  4. DEPAKOTE [Concomitant]
     Route: 065

REACTIONS (2)
  - Completed suicide [Fatal]
  - Off label use [Unknown]
